FAERS Safety Report 7414290-4 (Version None)
Quarter: 2011Q1

REPORT INFORMATION
  Report Type: 
  Country: None (occurrence: None)
  Receive Date: 20110302
  Receipt Date: 20100305
  Transmission Date: 20110831
  Serious: Yes (Other)
  Sender: FDA-Public Use
  Company Number: 305288

PATIENT
  Age: 103 Year
  Sex: Female
  Weight: 57.1 kg

DRUGS (1)
  1. NOVOLIN N [Suspect]
     Indication: TYPE 2 DIABETES MELLITUS
     Dosage: 20 IU, QD, SUBCUTANEOUS
     Route: 058
     Dates: end: 20100213

REACTIONS (1)
  - HYPOGLYCAEMIC SEIZURE [None]
